FAERS Safety Report 4689193-9 (Version None)
Quarter: 2005Q2

REPORT INFORMATION
  Report Type: 
  Country: None (occurrence: None)
  Receive Date: 20050608
  Receipt Date: 20050301
  Transmission Date: 20051028
  Serious: No
  Sender: FDA-Public Use
  Company Number: 2005-BP-03301BP

PATIENT
  Age: 61 Year
  Sex: Male

DRUGS (10)
  1. SPIRIVA [Suspect]
     Indication: CHRONIC OBSTRUCTIVE PULMONARY DISEASE
     Dosage: 18 MCG (18 MCG, 1 IN 1 D), IH
     Route: 055
     Dates: start: 20041210
  2. SPIRIVA [Suspect]
     Indication: CHRONIC OBSTRUCTIVE PULMONARY DISEASE
     Dosage: 18 MCG (18 MCG, 1 IN 1 D), IH
     Route: 055
     Dates: start: 20041210
  3. PULMICORT [Concomitant]
  4. ALBUTEROL NEBULIZER (SALBUTAMOL) [Concomitant]
  5. ALBUTEROL MDI (SALBUTAMOL) [Concomitant]
  6. NASACORT [Concomitant]
  7. OMEPRAZOLE [Concomitant]
  8. TRANXENE [Concomitant]
  9. SINGULAIR (MONTELUKAST) [Concomitant]
  10. MUCINEX (GUAIFENESIN) [Concomitant]

REACTIONS (2)
  - BRONCHITIS [None]
  - DYSPNOEA [None]
